FAERS Safety Report 5216577-2 (Version None)
Quarter: 2007Q1

REPORT INFORMATION
  Report Type: 
  Country: None (occurrence: None)
  Receive Date: 20070117
  Receipt Date: 20070111
  Transmission Date: 20070707
  Serious: Yes (Other)
  Sender: FDA-Public Use
  Company Number: DEWYE126312JAN07

PATIENT
  Sex: Female

DRUGS (1)
  1. RAPAMUNE [Suspect]
     Indication: PROPHYLAXIS AGAINST TRANSPLANT REJECTION
     Dosage: FOR LONGER THAN 2 YEARS

REACTIONS (3)
  - AUTOIMMUNE DISORDER [None]
  - COORDINATION ABNORMAL [None]
  - NERVOUS SYSTEM DISORDER [None]
